FAERS Safety Report 8308303-5 (Version None)
Quarter: 2012Q2

REPORT INFORMATION
  Report Type: 
  Country: None (occurrence: None)
  Receive Date: 20120424
  Receipt Date: 20120411
  Transmission Date: 20120825
  Serious: Yes (Death, Other)
  Sender: FDA-Public Use
  Company Number: KR-CELGENEUS-286-50794-12041191

PATIENT
  Age: 62 Year
  Sex: Female

DRUGS (3)
  1. INSULIN [Concomitant]
     Indication: DIABETES MELLITUS
     Route: 065
  2. HYDROXYL CHLOROQUINE [Concomitant]
     Indication: SYSTEMIC LUPUS ERYTHEMATOSUS
     Route: 065
  3. VIDAZA [Suspect]
     Indication: REFRACTORY CYTOPENIA WITH MULTILINEAGE DYSPLASIA
     Route: 058
     Dates: start: 20100301, end: 20100301

REACTIONS (3)
  - MYELODYSPLASTIC SYNDROME TRANSFORMATION [None]
  - NEUTROPHILIC PANNICULITIS [None]
  - ACUTE MYELOID LEUKAEMIA [None]
